FAERS Safety Report 4980747-9 (Version None)
Quarter: 2006Q2

REPORT INFORMATION
  Report Type: 
  Country: None (occurrence: None)
  Receive Date: 20060424
  Receipt Date: 20051003
  Transmission Date: 20061013
  Serious: Yes (Hospitalization)
  Sender: FDA-Public Use
  Company Number: US-MERCK-0510USA02801

PATIENT
  Age: 63 Year
  Sex: Female
  Weight: 82 kg

DRUGS (2)
  1. VIOXX [Suspect]
     Indication: ARTHRALGIA
     Route: 048
     Dates: start: 20020317, end: 20020101
  2. IBUPROFEN [Concomitant]
     Route: 065

REACTIONS (10)
  - ARTERIAL DISORDER [None]
  - CEREBRAL DISORDER [None]
  - CEREBROVASCULAR ACCIDENT [None]
  - CONVULSION [None]
  - CORONARY ARTERY DISEASE [None]
  - HIP ARTHROPLASTY [None]
  - JOINT INJURY [None]
  - LUNG DISORDER [None]
  - OVERDOSE [None]
  - RENAL DISORDER [None]
